FAERS Safety Report 7606695-3 (Version None)
Quarter: 2011Q3

REPORT INFORMATION
  Report Type: 
  Country: None (occurrence: None)
  Receive Date: 20110713
  Receipt Date: 20110708
  Transmission Date: 20111222
  Serious: Yes (Other)
  Sender: FDA-Public Use
  Company Number: US-ROCHE-782392

PATIENT
  Sex: Female
  Weight: 90.9 kg

DRUGS (4)
  1. BONIVA [Suspect]
     Indication: OSTEOPOROSIS
     Dosage: DATES OF USE: 3 TO 4 YEARS
     Route: 048
  2. BONIVA [Suspect]
     Route: 048
  3. ALLERGY [Concomitant]
     Dosage: ALLERGY PILLS
  4. POTASSIUM [Concomitant]

REACTIONS (3)
  - TOOTH FRACTURE [None]
  - TOOTH REPAIR [None]
  - DEVICE FAILURE [None]
